FAERS Safety Report 7315552-1 (Version None)
Quarter: 2011Q1

REPORT INFORMATION
  Report Type: 
  Country: None (occurrence: None)
  Receive Date: 20110225
  Receipt Date: 20110216
  Transmission Date: 20110831
  Serious: Yes (Hospitalization)
  Sender: FDA-Public Use
  Company Number: CA-JNJFOC-20110205975

PATIENT
  Sex: Female
  Weight: 42.1 kg

DRUGS (25)
  1. FERROUS FUMARATE [Concomitant]
  2. PANTOLOC [Concomitant]
  3. METOCLOPRAMIDE HCL [Concomitant]
  4. CHLORAL HYDRATE [Concomitant]
  5. TRAZODONE HCL [Concomitant]
  6. REMICADE [Suspect]
     Indication: CROHN'S DISEASE
     Route: 042
  7. VENLAFAXINE [Concomitant]
  8. PREDNISONE [Concomitant]
  9. VITAMIN B-12 [Concomitant]
  10. FOLIC ACID [Concomitant]
  11. ALENDRONATE [Concomitant]
  12. SEROQUEL [Concomitant]
  13. OXYCONTIN [Concomitant]
  14. ACYCLOVIR [Concomitant]
  15. IMURAN [Concomitant]
  16. NEXIUM [Concomitant]
  17. NOVASEN [Concomitant]
  18. NEURONTIN [Concomitant]
  19. STRESS TABS [Concomitant]
  20. ATIVAN [Concomitant]
  21. STATEX [Concomitant]
  22. DOMPERIDONE [Concomitant]
  23. FLUVOXAMINE [Concomitant]
  24. MAXALT [Concomitant]
  25. ONDANSETRON [Concomitant]

REACTIONS (2)
  - PNEUMONIA [None]
  - LUNG DISORDER [None]
